FAERS Safety Report 14315160 (Version 1)
Quarter: 2017Q4

REPORT INFORMATION
  Report Type: Report from Study
  Country: US (occurrence: US)
  Receive Date: 20171221
  Receipt Date: 20171221
  Transmission Date: 20180321
  Serious: Yes (Death, Hospitalization, Other)
  Sender: FDA-Public Use
  Company Number: US-GILEAD-2017-0311711

PATIENT
  Age: 60 Year
  Sex: Female

DRUGS (1)
  1. AMBRISENTAN [Suspect]
     Active Substance: AMBRISENTAN
     Indication: PRODUCT USED FOR UNKNOWN INDICATION
     Dosage: 5 MG, UNK
     Route: 065
     Dates: start: 20170624

REACTIONS (11)
  - Peripheral swelling [Unknown]
  - Pulmonary fibrosis [Unknown]
  - Organ failure [Unknown]
  - Pulmonary mass [Unknown]
  - Death [Fatal]
  - Pneumonia [Unknown]
  - Pneumonitis [Unknown]
  - Liver disorder [Unknown]
  - Dyspnoea [Unknown]
  - Abdominal distension [Unknown]
  - Cardiac disorder [Unknown]
